FAERS Safety Report 5320163-3 (Version None)
Quarter: 2007Q2

REPORT INFORMATION
  Report Type: 
  Country: None (occurrence: None)
  Receive Date: 20070509
  Receipt Date: 20070508
  Transmission Date: 20071010
  Serious: Yes (Life-Threatening)
  Sender: FDA-Public Use
  Company Number: US-BRISTOL-MYERS SQUIBB COMPANY-13729124

PATIENT
  Age: 62 Year
  Sex: Male
  Weight: 118 kg

DRUGS (25)
  1. DEFINITY [Suspect]
     Indication: ECHOCARDIOGRAM
     Dosage: DILUTED BOLUS
     Route: 040
     Dates: start: 20070327, end: 20070327
  2. ALLOPURINOL [Concomitant]
  3. ASPIRIN [Concomitant]
  4. ATORVASTATIN CALCIUM [Concomitant]
  5. BUPROPION HYDROCHLORIDE [Concomitant]
  6. CALCIUM ACETATE [Concomitant]
  7. ADVAIR DISKUS 100/50 [Concomitant]
  8. CARDILOL [Concomitant]
  9. INSULIN [Concomitant]
  10. LORAZEPAM [Concomitant]
  11. NYSTATIN [Concomitant]
  12. PANTOPRAZOLE [Concomitant]
  13. ROPINIROLE HCL [Concomitant]
  14. TRIAMCINOLONE [Concomitant]
  15. VANCOMYCIN [Concomitant]
  16. HYDROCODONE [Concomitant]
  17. MOTRIN [Concomitant]
  18. MORPHINE SULFATE [Concomitant]
  19. ONDANSETRON [Concomitant]
  20. CIPROFLOXACIN [Concomitant]
  21. DARBEPOETIN ALFA [Concomitant]
  22. VITAMINS MULTIPLE [Concomitant]
  23. ALBUTEROL [Concomitant]
  24. HEPARIN [Concomitant]
  25. ISOSORBIDE [Concomitant]

REACTIONS (2)
  - COMA [None]
  - RESPIRATORY ARREST [None]
